FAERS Safety Report 12872818 (Version 1)
Quarter: 2016Q4

REPORT INFORMATION
  Report Type: Spontaneous
  Country: NO (occurrence: NO)
  Receive Date: 20161021
  Receipt Date: 20161021
  Transmission Date: 20170207
  Serious: Yes (Other)
  Sender: FDA-Public Use
  Company Number: NO-ROCHE-1842996

PATIENT
  Sex: Male

DRUGS (1)
  1. RIVOTRIL [Suspect]
     Active Substance: CLONAZEPAM
     Indication: ANXIETY
     Route: 048

REACTIONS (8)
  - Off label use [Unknown]
  - Medication error [Unknown]
  - Restlessness [Unknown]
  - Suicidal ideation [Unknown]
  - Insomnia [Unknown]
  - Anxiety [Unknown]
  - Malaise [Unknown]
  - Fear [Unknown]
